FAERS Safety Report 9092102 (Version 1)
Quarter: 2013Q1

REPORT INFORMATION
  Report Type: Spontaneous
  Country: PR (occurrence: PR)
  Receive Date: 20130131
  Receipt Date: 20130131
  Transmission Date: 20140127
  Serious: No
  Sender: FDA-Public Use
  Company Number: PR-ABBOTT-12P-131-0991853-00

PATIENT
  Age: 35 None
  Sex: Female
  Weight: 52.66 kg

DRUGS (4)
  1. HUMIRA [Suspect]
     Indication: RHEUMATOID ARTHRITIS
     Route: 058
     Dates: start: 201208
  2. CATAFLAM [Concomitant]
     Indication: RHEUMATOID ARTHRITIS
     Route: 048
  3. TRAMADOL [Concomitant]
     Indication: RHEUMATOID ARTHRITIS
     Route: 048
  4. SYNTHROID [Concomitant]
     Indication: THYROIDITIS
     Route: 048

REACTIONS (3)
  - Arthralgia [Recovering/Resolving]
  - Drug ineffective [Recovering/Resolving]
  - Pyrexia [Recovered/Resolved]
